FAERS Safety Report 9682702 (Version 2)
Quarter: 2013Q4

REPORT INFORMATION
  Report Type: Spontaneous
  Country: FI (occurrence: FI)
  Receive Date: 20131112
  Receipt Date: 20131112
  Transmission Date: 20140711
  Serious: Yes (Other)
  Sender: FDA-Public Use
  Company Number: FI-009507513-1309FIN001462

PATIENT
  Age: 25 Year
  Sex: Female

DRUGS (4)
  1. MERCILON [Suspect]
     Dosage: UNK
     Route: 048
     Dates: end: 201212
  2. MERCILON [Suspect]
     Dosage: UNK
     Route: 048
     Dates: start: 2013, end: 20130830
  3. MERCILON [Suspect]
     Dosage: UNK
     Route: 048
     Dates: start: 20130910
  4. AERIUS [Concomitant]
     Dosage: UNK, QD
     Route: 048

REACTIONS (5)
  - Abortion induced [Recovered/Resolved]
  - Unintended pregnancy [Recovered/Resolved]
  - Inappropriate schedule of drug administration [Unknown]
  - Fungal infection [Unknown]
  - Vaginal haemorrhage [Unknown]
